FAERS Safety Report 25540945 (Version 1)
Quarter: 2025Q3

REPORT INFORMATION
  Report Type: Spontaneous
  Country: US (occurrence: US)
  Receive Date: 20250710
  Receipt Date: 20250710
  Transmission Date: 20251021
  Serious: Yes (Hospitalization, Other)
  Sender: PRAGMA PHARMACEUTICALS
  Company Number: US-PRAGMA-2025-US-032910

PATIENT
  Age: 24 Year
  Sex: Male

DRUGS (1)
  1. CEPHALEXIN [Suspect]
     Active Substance: CEPHALEXIN
     Indication: Cellulitis
     Route: 048

REACTIONS (1)
  - Drug-induced liver injury [Recovered/Resolved]
